FAERS Safety Report 9400172 (Version 1)
Quarter: 2013Q2

REPORT INFORMATION
  Report Type: Spontaneous
  Country: US (occurrence: None)
  Receive Date: 20130509
  Receipt Date: 20130509
  Transmission Date: 20140414
  Serious: Yes (Death)
  Sender: FDA-Public Use
  Company Number: SP05585

PATIENT
  Age: 62 Year
  Sex: Female
  Weight: 53 kg

DRUGS (5)
  1. XIFAXAN (TABLETS) [Suspect]
     Indication: HEPATIC ENCEPHALOPATHY
     Route: 048
     Dates: start: 201201, end: 201201
  2. XIFAXAN (TABLETS) [Suspect]
     Route: 048
     Dates: start: 201202, end: 201202
  3. LACTULOSE [Concomitant]
  4. SPIRONOLACTONE [Concomitant]
  5. VANCOMYCIN (SOLUTION FOR INJECTION/INFUSION) [Concomitant]

REACTIONS (6)
  - Respiratory failure [None]
  - Renal failure acute [None]
  - Staphylococcal infection [None]
  - Septic shock [None]
  - Haemodialysis [None]
  - Toxic epidermal necrolysis [None]
